FAERS Safety Report 16912791 (Version 3)
Quarter: 2019Q4

REPORT INFORMATION
  Report Type: Spontaneous
  Country: US (occurrence: US)
  Receive Date: 20191014
  Receipt Date: 20191223
  Transmission Date: 20200122
  Serious: Yes (Hospitalization)
  Sender: FDA-Public Use
  Company Number: US-GLAXOSMITHKLINE-US2019181863

PATIENT
  Age: 57 Year
  Sex: Female

DRUGS (1)
  1. BENLYSTA [Suspect]
     Active Substance: BELIMUMAB
     Indication: PRODUCT USED FOR UNKNOWN INDICATION
     Dosage: UNK UNK, CYC, GETS MONTHLY INFUSIONS IN THE DOCTORS OFFICE
     Route: 042
     Dates: start: 20161007

REACTIONS (11)
  - Rib fracture [Unknown]
  - Malaise [Unknown]
  - Ankle fracture [Unknown]
  - Headache [Unknown]
  - Arthropod bite [Unknown]
  - Skin operation [Unknown]
  - Abdominal pain [Unknown]
  - Hepatic enzyme increased [Unknown]
  - Skin disorder [Unknown]
  - Cerebral congestion [Unknown]
  - Fall [Unknown]

NARRATIVE: CASE EVENT DATE: 20191004
